FAERS Safety Report 6278284-7 (Version None)
Quarter: 2009Q3

REPORT INFORMATION
  Report Type: 
  Country: None (occurrence: None)
  Receive Date: 20090722
  Receipt Date: 20090716
  Transmission Date: 20100115
  Serious: Yes (Other)
  Sender: FDA-Public Use
  Company Number: US-AVENTIS-200916272US

PATIENT
  Age: 80 Year
  Sex: Female

DRUGS (4)
  1. LOVENOX [Suspect]
     Indication: CORONARY ARTERY BYPASS
     Dates: start: 20060801
  2. LOVENOX [Suspect]
     Dates: start: 20060801
  3. COUMADIN [Suspect]
     Indication: THROMBOSIS PROPHYLAXIS
     Dosage: DOSE: UNK
  4. ASPIRIN [Concomitant]
     Dosage: DOSE: UNK

REACTIONS (1)
  - INTERNATIONAL NORMALISED RATIO INCREASED [None]
